FAERS Safety Report 6698071-5 (Version None)
Quarter: 2010Q2

REPORT INFORMATION
  Report Type: 
  Country: None (occurrence: None)
  Receive Date: 20100426
  Receipt Date: 20100426
  Transmission Date: 20101027
  Serious: Yes (Other)
  Sender: FDA-Public Use
  Company Number: None

PATIENT
  Age: 67 Year
  Sex: Male
  Weight: 99.7913 kg

DRUGS (2)
  1. PLAVIX [Suspect]
     Indication: ANTIPLATELET THERAPY
     Dosage: 75 MG 1 PO
     Route: 048
     Dates: start: 20100330, end: 20100402
  2. PLAVIX [Suspect]
     Indication: CEREBROVASCULAR ACCIDENT
     Dosage: 75 MG 1 PO
     Route: 048
     Dates: start: 20100330, end: 20100402

REACTIONS (4)
  - ANAL HAEMORRHAGE [None]
  - HAEMORRHOIDS [None]
  - NAUSEA [None]
  - RECTAL HAEMORRHAGE [None]
